FAERS Safety Report 5446078-8 (Version None)
Quarter: 2007Q3

REPORT INFORMATION
  Report Type: 
  Country: None (occurrence: None)
  Receive Date: 20070904
  Receipt Date: 20070821
  Transmission Date: 20080115
  Serious: Yes (Hospitalization)
  Sender: FDA-Public Use
  Company Number: S07-AUT-03696-01

PATIENT
  Age: 36 Year
  Sex: Female

DRUGS (4)
  1. CITALOPRAM HYDROBROMIDE [Suspect]
     Dosage: 40 MG QD PO
     Route: 048
     Dates: start: 20060127, end: 20060202
  2. CITALOPRAM HYDROBROMIDE [Suspect]
     Dosage: 20 MG QD PO
     Route: 048
     Dates: start: 20060126, end: 20060126
  3. NIPOLEPT (ZOTEPINE) [Concomitant]
  4. ZOLPIDEM TARTRATE [Concomitant]

REACTIONS (4)
  - ACCOMMODATION DISORDER [None]
  - ACTIVITIES OF DAILY LIVING IMPAIRED [None]
  - READING DISORDER [None]
  - VISION BLURRED [None]
